FAERS Safety Report 5012504-1 (Version None)
Quarter: 2006Q2

REPORT INFORMATION
  Report Type: 
  Country: None (occurrence: None)
  Receive Date: 20060414
  Receipt Date: 20060113
  Transmission Date: 20061013
  Serious: No
  Sender: FDA-Public Use
  Company Number: 2006SP000241

PATIENT
  Age: 81 Year
  Sex: Female
  Weight: 65.7716 kg

DRUGS (11)
  1. LUNESTA [Suspect]
     Indication: INSOMNIA
     Dosage: SEE IMAGE
     Route: 048
     Dates: start: 20050518, end: 20050501
  2. LUNESTA [Suspect]
     Indication: INSOMNIA
     Dosage: SEE IMAGE
     Route: 048
     Dates: start: 20050101, end: 20050601
  3. PROPRANOLOL [Concomitant]
  4. ENALAPRIL [Concomitant]
  5. ANASTROZOLE [Concomitant]
  6. EFFEXOR [Concomitant]
  7. HYDROCHLOROTHIAZIDE [Concomitant]
  8. SYNTHROID [Concomitant]
  9. CLONIDINE [Concomitant]
  10. ATORVASTATIN CALCIUM [Concomitant]
  11. AMBIEN [Concomitant]

REACTIONS (2)
  - DRUG INEFFECTIVE [None]
  - INITIAL INSOMNIA [None]
